FAERS Safety Report 10518476 (Version 2)
Quarter: 2015Q1

REPORT INFORMATION
  Report Type: Spontaneous
  Country: US (occurrence: US)
  Receive Date: 20141015
  Receipt Date: 20150107
  Transmission Date: 20150720
  Serious: Yes (Hospitalization)
  Sender: FDA-Public Use
  Company Number: US-JNJFOC-20141004403

PATIENT
  Sex: Female
  Weight: 67.13 kg

DRUGS (4)
  1. LEVAQUIN [Suspect]
     Active Substance: LEVOFLOXACIN
     Indication: BRONCHOPNEUMONIA
     Route: 048
     Dates: start: 20140312, end: 20140322
  2. VALACYCLOVIR [Concomitant]
     Active Substance: VALACYCLOVIR HYDROCHLORIDE
     Indication: HERPES SIMPLEX
     Dosage: INHALE 1 PUFF BY MOUTH EVERY 4 TO 6 HOURS AS NEEDED. SHAKE WELL.
     Route: 048
     Dates: start: 20111109
  3. XANAX [Concomitant]
     Active Substance: ALPRAZOLAM
     Indication: ADJUSTMENT DISORDER WITH ANXIETY
     Dosage: INHALE 1 PUFF BY MOUTH EVERY 4 TO 6 HOURS AS NEEDED. SHAKE WELL.
     Route: 048
     Dates: start: 20120529
  4. XOPENEX [Concomitant]
     Active Substance: LEVALBUTEROL HYDROCHLORIDE
     Indication: ASTHMA
     Dosage: INHALE 1 PUFF BY MOUTH EVERY 4 TO 6 HOURS AS NEEDED. SHAKE WELL.
     Route: 048
     Dates: start: 20140312

REACTIONS (4)
  - Tendonitis [Not Recovered/Not Resolved]
  - Medial tibial stress syndrome [Not Recovered/Not Resolved]
  - Meniscus injury [Not Recovered/Not Resolved]
  - Arthropathy [Not Recovered/Not Resolved]

NARRATIVE: CASE EVENT DATE: 2014
